FAERS Safety Report 16752346 (Version 1)
Quarter: 2019Q3

REPORT INFORMATION
  Report Type: Report from Study
  Country: US (occurrence: US)
  Receive Date: 20190828
  Receipt Date: 20190828
  Transmission Date: 20191005
  Serious: Yes (Hospitalization, Other)
  Sender: FDA-Public Use
  Company Number: US-GILEAD-2019-0425568

PATIENT
  Sex: Male

DRUGS (14)
  1. ZENPEP [Concomitant]
     Active Substance: PANCRELIPASE AMYLASE\PANCRELIPASE LIPASE\PANCRELIPASE PROTEASE
  2. RENVELA [Concomitant]
     Active Substance: SEVELAMER CARBONATE
  3. AZTREONAM LYSINE [Suspect]
     Active Substance: AZTREONAM LYSINE
     Indication: CYSTIC FIBROSIS
     Dosage: 75 MG, TID, CYCLED 28 DAYS ON AND 21 DAYS OFF
     Route: 055
     Dates: start: 201905
  4. VALCYTE [Concomitant]
     Active Substance: VALGANCICLOVIR HYDROCHLORIDE
  5. MULTIVITAMINS [VITAMINS NOS] [Concomitant]
     Active Substance: VITAMINS
  6. VITAMIN D [VITAMIN D NOS] [Concomitant]
     Active Substance: VITAMIN D NOS
  7. HUMALOG [Concomitant]
     Active Substance: INSULIN LISPRO
  8. COREG [Concomitant]
     Active Substance: CARVEDILOL
  9. PREDNISONE. [Concomitant]
     Active Substance: PREDNISONE
  10. URSODIOL. [Concomitant]
     Active Substance: URSODIOL
  11. AMLODIPINE;ATORVASTATIN [Concomitant]
  12. TACROLIMUS. [Concomitant]
     Active Substance: TACROLIMUS
  13. IMURAN [Concomitant]
     Active Substance: AZATHIOPRINE
  14. ARANESP [Concomitant]
     Active Substance: DARBEPOETIN ALFA

REACTIONS (2)
  - Infection [Not Recovered/Not Resolved]
  - Off label use [Not Recovered/Not Resolved]

NARRATIVE: CASE EVENT DATE: 2019
